FAERS Safety Report 24970909 (Version 1)
Quarter: 2025Q1

REPORT INFORMATION
  Report Type: Spontaneous
  Country: FR (occurrence: FR)
  Receive Date: 20250214
  Receipt Date: 20250214
  Transmission Date: 20250409
  Serious: Yes (Hospitalization)
  Sender: INCYTE
  Company Number: FR-002147023-NVSC2025FR023947

PATIENT

DRUGS (1)
  1. RUXOLITINIB [Suspect]
     Active Substance: RUXOLITINIB
     Indication: Polycythaemia vera
     Dosage: 5 MG, BID (1 MORNING AND EVENING)
     Route: 065
     Dates: start: 202408

REACTIONS (2)
  - Product availability issue [Unknown]
  - Lung disorder [Unknown]
